FAERS Safety Report 5247248-4 (Version None)
Quarter: 2007Q1

REPORT INFORMATION
  Report Type: 
  Country: None (occurrence: None)
  Receive Date: 20070227
  Receipt Date: 20070213
  Transmission Date: 20070707
  Serious: Yes (Hospitalization)
  Sender: FDA-Public Use
  Company Number: PHBS2005TR12736

PATIENT
  Age: 13 Year
  Sex: Female

DRUGS (1)
  1. CARBAMAZEPINE [Suspect]
     Dosage: 4.8 G, ONCE/SINGLE
     Route: 048

REACTIONS (6)
  - DRUG LEVEL INCREASED [None]
  - EXTENSOR PLANTAR RESPONSE [None]
  - GASTRIC LAVAGE [None]
  - HEART RATE INCREASED [None]
  - INTENTIONAL OVERDOSE [None]
  - LOSS OF CONSCIOUSNESS [None]
